FAERS Safety Report 12270763 (Version 1)
Quarter: 2016Q2

REPORT INFORMATION
  Report Type: Spontaneous
  Country: US (occurrence: US)
  Receive Date: 20160415
  Receipt Date: 20160415
  Transmission Date: 20160815
  Serious: No
  Sender: FDA-Public Use
  Company Number: US-009507513-1604USA000885

PATIENT
  Age: 36 Year
  Sex: Female

DRUGS (4)
  1. BENADRYL [Suspect]
     Active Substance: DIPHENHYDRAMINE HYDROCHLORIDE
  2. PROGESTERONE. [Suspect]
     Active Substance: PROGESTERONE
     Dosage: DAILY PROGESTERONE INJECTIONS IN THE BUTTOCKS AT ALTERNATING SITES.
  3. GANIRELIX ACETATE INJECTION [Suspect]
     Active Substance: GANIRELIX ACETATE
     Indication: IN VITRO FERTILISATION
     Dosage: 250 MICROGRAM, EVERY DAY
     Route: 058
  4. FOLLISTIM [Suspect]
     Active Substance: FOLLITROPIN
     Indication: IN VITRO FERTILISATION
     Dosage: 375 IU, EVERY DAY FOR 10-14 DAYS
     Route: 058

REACTIONS (2)
  - Cellulitis [Recovered/Resolved]
  - Pruritus [Unknown]
